FAERS Safety Report 5946272-3 (Version None)
Quarter: 2008Q4

REPORT INFORMATION
  Report Type: 
  Country: None (occurrence: None)
  Receive Date: 20081110
  Receipt Date: 20081009
  Transmission Date: 20090506
  Serious: No
  Sender: FDA-Public Use
  Company Number: US-BAYER-200827117NA

PATIENT
  Age: 34 Year
  Sex: Female
  Weight: 60 kg

DRUGS (2)
  1. MIRENA [Suspect]
     Indication: CONTRACEPTION
     Route: 015
     Dates: start: 20080424, end: 20080501
  2. MIRENA [Suspect]
     Route: 015
     Dates: start: 20080620

REACTIONS (3)
  - COMPLICATION OF DEVICE INSERTION [None]
  - DEVICE MALFUNCTION [None]
  - IUCD COMPLICATION [None]
